FAERS Safety Report 11866941 (Version 1)
Quarter: 2015Q4

REPORT INFORMATION
  Report Type: Report from Study
  Country: IN (occurrence: IN)
  Receive Date: 20151224
  Receipt Date: 20151224
  Transmission Date: 20160305
  Serious: Yes (Hospitalization)
  Sender: FDA-Public Use
  Company Number: IN-ELI_LILLY_AND_COMPANY-IN201509004874

PATIENT
  Sex: Female

DRUGS (1)
  1. PEMETREXED [Suspect]
     Active Substance: PEMETREXED
     Indication: LUNG NEOPLASM MALIGNANT
     Dosage: 800 MG, CYCLICAL, EVERY 21 DAYS
     Route: 042
     Dates: start: 20150826

REACTIONS (3)
  - Malaise [Recovering/Resolving]
  - Pyrexia [Recovering/Resolving]
  - Blood electrolytes decreased [Recovering/Resolving]
